FAERS Safety Report 6047069-9 (Version None)
Quarter: 2009Q1

REPORT INFORMATION
  Report Type: 
  Country: None (occurrence: None)
  Receive Date: 20090122
  Receipt Date: 20090116
  Transmission Date: 20090719
  Serious: Yes (Death, Hospitalization, Other)
  Sender: FDA-Public Use
  Company Number: DK-WYE-G02960009

PATIENT
  Sex: Female

DRUGS (3)
  1. GEMTUZUMAB OZOGAMICIN [Suspect]
     Dosage: DOSE UNKNOWN
     Dates: start: 20081025, end: 20081209
  2. EVOLTRA [Suspect]
     Dosage: DOSE UNKNOWN
     Dates: start: 20081025, end: 20081209
  3. DAUNORUBICIN [Suspect]
     Dosage: DOSE UNKNOWN
     Dates: start: 20081025, end: 20081209

REACTIONS (3)
  - CLOSTRIDIAL INFECTION [None]
  - FEBRILE NEUTROPENIA [None]
  - NEUTROPENIC SEPSIS [None]
